FAERS Safety Report 4997482-3 (Version None)
Quarter: 2006Q2

REPORT INFORMATION
  Report Type: 
  Country: None (occurrence: None)
  Receive Date: 20060509
  Receipt Date: 20060123
  Transmission Date: 20061013
  Serious: Yes (Hospitalization, Disabling)
  Sender: FDA-Public Use
  Company Number: US-MERCK-0601USA02658

PATIENT
  Age: 53 Year
  Sex: Male
  Weight: 109 kg

DRUGS (15)
  1. VIOXX [Suspect]
     Indication: ARTHRITIS
     Route: 048
     Dates: start: 20010501, end: 20040901
  2. PRAVACHOL [Concomitant]
     Route: 065
  3. CARTIA XT [Concomitant]
     Route: 065
  4. ALLEGRA [Concomitant]
     Route: 065
  5. RANITIDINE [Concomitant]
     Route: 065
  6. ALTACE [Concomitant]
     Route: 065
  7. PLAVIX [Concomitant]
     Route: 065
  8. KLOR-CON [Concomitant]
     Route: 065
  9. FUROSEMIDE [Concomitant]
     Route: 065
  10. DIGITEK [Concomitant]
     Route: 065
  11. TRIAZOLAM [Concomitant]
     Route: 065
  12. COZAAR [Concomitant]
     Route: 048
  13. OMEPRAZOLE [Concomitant]
     Route: 065
  14. FLUOXETINE [Concomitant]
     Route: 065
  15. CARTIA (DILTIAZEM HYDROCHLORIDE) [Concomitant]
     Route: 065

REACTIONS (1)
  - MYOCARDIAL INFARCTION [None]
